FAERS Safety Report 8789127 (Version 1)
Quarter: 2012Q4

REPORT INFORMATION
  Report Type: Spontaneous
  Country: US (occurrence: None)
  Receive Date: 20120904
  Receipt Date: 20120904
  Transmission Date: 20130627
  Serious: Yes (Life-Threatening)
  Sender: FDA-Public Use
  Company Number: 100805-006229

PATIENT
  Age: 18 Year
  Sex: Female

DRUGS (1)
  1. PROACTIV REFINING MASK [Suspect]
     Indication: ACNE
     Dosage: Once daily dermal
     Dates: start: 20100726

REACTIONS (5)
  - Swelling [None]
  - Rhinitis [None]
  - Oral mucosal erythema [None]
  - Dyspnoea [None]
  - Documented hypersensitivity to administered drug [None]
